FAERS Safety Report 23019570 (Version 2)
Quarter: 2023Q4

REPORT INFORMATION
  Report Type: Spontaneous
  Country: US (occurrence: US)
  Receive Date: 20231003
  Receipt Date: 20231218
  Transmission Date: 20240109
  Serious: No
  Sender: FDA-Public Use
  Company Number: US-TAKEDA-2023TUS094590

PATIENT
  Sex: Female
  Weight: 66.667 kg

DRUGS (6)
  1. VYVANSE [Suspect]
     Active Substance: LISDEXAMFETAMINE DIMESYLATE
     Indication: Attention deficit hyperactivity disorder
     Dosage: 70 MILLIGRAM
     Route: 048
     Dates: end: 20230920
  2. VYVANSE [Suspect]
     Active Substance: LISDEXAMFETAMINE DIMESYLATE
     Dosage: 1 DOSAGE FORM, QD
     Route: 065
  3. PROAIR HFA [Concomitant]
     Active Substance: ALBUTEROL SULFATE
     Dosage: UNK
     Route: 055
  4. ADDERALL [Concomitant]
     Active Substance: AMPHETAMINE ASPARTATE\AMPHETAMINE SULFATE\DEXTROAMPHETAMINE SACCHARATE\DEXTROAMPHETAMINE SULFATE
     Dosage: UNK
     Route: 065
  5. CLONOPIN [Concomitant]
     Active Substance: CLONAZEPAM
     Dosage: UNK
     Route: 065
  6. CYCLOBENZAPRINE [Concomitant]
     Active Substance: CYCLOBENZAPRINE
     Dosage: 1 DOSAGE FORM
     Route: 065

REACTIONS (9)
  - Asthenia [Unknown]
  - Impaired work ability [Unknown]
  - Marital problem [Unknown]
  - Disturbance in attention [Unknown]
  - Withdrawal syndrome [Unknown]
  - Dizziness [Unknown]
  - Anxiety [Unknown]
  - Weight decreased [Unknown]
  - Insomnia [Unknown]
